FAERS Safety Report 16433870 (Version 1)
Quarter: 2019Q2

REPORT INFORMATION
  Report Type: Spontaneous
  Country: US (occurrence: US)
  Receive Date: 20190614
  Receipt Date: 20190614
  Transmission Date: 20190711
  Serious: No
  Sender: FDA-Public Use
  Company Number: US-JNJFOC-20190602978

PATIENT
  Age: 7 Year
  Sex: Female
  Weight: 29.48 kg

DRUGS (2)
  1. ZYRTEC [Concomitant]
     Active Substance: CETIRIZINE HYDROCHLORIDE
     Route: 065
  2. CONCERTA [Suspect]
     Active Substance: METHYLPHENIDATE HYDROCHLORIDE
     Indication: ATTENTION DEFICIT/HYPERACTIVITY DISORDER
     Route: 048
     Dates: start: 201905, end: 20190601

REACTIONS (4)
  - Dysphagia [Unknown]
  - Depressed mood [Recovered/Resolved]
  - Wrong technique in product usage process [Unknown]
  - Emotional disorder [Recovered/Resolved]

NARRATIVE: CASE EVENT DATE: 201905
